FAERS Safety Report 13269283 (Version 2)
Quarter: 2017Q2

REPORT INFORMATION
  Report Type: Spontaneous
  Country: US (occurrence: US)
  Receive Date: 20170224
  Receipt Date: 20170609
  Transmission Date: 20170830
  Serious: No
  Sender: FDA-Public Use
  Company Number: US-CELGENEUS-USA-2017026062

PATIENT
  Sex: Male
  Weight: 111.23 kg

DRUGS (1)
  1. OTEZLA [Suspect]
     Active Substance: APREMILAST
     Indication: PSORIASIS
     Dosage: 2 DOSAGE FORMS
     Route: 048
     Dates: start: 20170131, end: 201702

REACTIONS (1)
  - Insomnia [Recovered/Resolved]
